FAERS Safety Report 21099898 (Version 2)
Quarter: 2022Q3

REPORT INFORMATION
  Report Type: Spontaneous
  Country: US (occurrence: US)
  Receive Date: 20220719
  Receipt Date: 20220922
  Transmission Date: 20221027
  Serious: Yes (Hospitalization, Other)
  Sender: FDA-Public Use
  Company Number: US-GLENMARK PHARMACEUTICALS-2022GMK073592

PATIENT
  Age: 81 Year
  Sex: Female

DRUGS (2)
  1. VORICONAZOLE [Suspect]
     Active Substance: VORICONAZOLE
     Indication: Phaeohyphomycosis
     Dosage: UNK
     Route: 042
  2. FLUCYTOSINE [Concomitant]
     Active Substance: FLUCYTOSINE
     Indication: Phaeohyphomycosis
     Dosage: UNK
     Route: 048

REACTIONS (4)
  - Lung abscess [Recovered/Resolved]
  - Phaeohyphomycotic brain abscess [Recovered/Resolved]
  - Infection [Recovered/Resolved]
  - Treatment failure [Unknown]
